FAERS Safety Report 5496966-1 (Version None)
Quarter: 2007Q4

REPORT INFORMATION
  Report Type: 
  Country: None (occurrence: None)
  Receive Date: 20071025
  Receipt Date: 20071015
  Transmission Date: 20080405
  Serious: Yes (Other)
  Sender: FDA-Public Use
  Company Number: B0492325A

PATIENT
  Age: 65 Year
  Sex: Female

DRUGS (3)
  1. DEROXAT [Suspect]
     Indication: DRUG USE FOR UNKNOWN INDICATION
     Dosage: 20MG PER DAY
     Route: 048
     Dates: start: 20030101, end: 20070801
  2. FOSAMAX [Concomitant]
     Route: 065
     Dates: start: 20040101, end: 20070901
  3. BONIVA [Concomitant]
     Route: 065
     Dates: start: 20070901

REACTIONS (3)
  - BLOOD LACTATE DEHYDROGENASE INCREASED [None]
  - GAMMA-GLUTAMYLTRANSFERASE INCREASED [None]
  - LEUKOPENIA [None]
